FAERS Safety Report 10469404 (Version 1)
Quarter: 2014Q3

REPORT INFORMATION
  Report Type: Spontaneous
  Country: US (occurrence: None)
  Receive Date: 20140903
  Receipt Date: 20140903
  Transmission Date: 20150326
  Serious: Yes (Other)
  Sender: FDA-Public Use
  Company Number: 1398385

PATIENT
  Age: 61 Year
  Sex: Male

DRUGS (2)
  1. CHLORAMBUCIL (CHLORAMBUCIL) [Concomitant]
  2. GAZYVA [Suspect]
     Active Substance: OBINUTUZUMAB
     Indication: CHRONIC LYMPHOCYTIC LEUKAEMIA

REACTIONS (2)
  - Neutropenia [None]
  - Thrombocytopenia [None]
